FAERS Safety Report 7617984-0 (Version None)
Quarter: 2011Q3

REPORT INFORMATION
  Report Type: 
  Country: None (occurrence: None)
  Receive Date: 20110718
  Receipt Date: 20110705
  Transmission Date: 20111222
  Serious: Yes (Other)
  Sender: FDA-Public Use
  Company Number: PHHY2010US87885

PATIENT
  Sex: Female
  Weight: 56.689 kg

DRUGS (4)
  1. EXTAVIA [Suspect]
     Indication: MULTIPLE SCLEROSIS
     Dosage: 0.25 MG, QOD
     Route: 058
     Dates: start: 20101110
  2. BIRTH CONTROL PILLS [Concomitant]
     Dosage: UNK UKN, UNK
  3. SOLU-MEDROL [Concomitant]
     Dosage: UNK UKN, UNK
  4. ASPIRIN [Concomitant]
     Dosage: UNK UKN, UNK

REACTIONS (7)
  - INJECTION SITE PRURITUS [None]
  - INJECTION SITE HAEMORRHAGE [None]
  - INJECTION SITE REACTION [None]
  - INJECTION SITE PAIN [None]
  - CENTRAL NERVOUS SYSTEM LESION [None]
  - INJECTION SITE ERYTHEMA [None]
  - INJECTION SITE HAEMATOMA [None]
